FAERS Safety Report 14538303 (Version 3)
Quarter: 2018Q4

REPORT INFORMATION
  Report Type: Spontaneous
  Country: US (occurrence: US)
  Receive Date: 20180216
  Receipt Date: 20181022
  Transmission Date: 20190204
  Serious: Yes (Life-Threatening, Hospitalization, Other)
  Sender: FDA-Public Use
  Company Number: US-CIPLA LTD.-2018US04407

PATIENT

DRUGS (4)
  1. AMLODIPINE [Suspect]
     Active Substance: AMLODIPINE BESYLATE
     Dosage: UNK, UNKNOWN AMOUNT
     Route: 065
  2. ATENOLOL. [Suspect]
     Active Substance: ATENOLOL
     Dosage: UNK, UNKNOWN AMOUNT
     Route: 065
  3. HYDROCHLOROTHIAZIDE. [Suspect]
     Active Substance: HYDROCHLOROTHIAZIDE
     Dosage: UNK, UNKNOWN AMOUNT
     Route: 065
  4. DOXAZOCIN [Suspect]
     Active Substance: DOXAZOSIN MESYLATE
     Dosage: UNK, UNKNOWN AMOUNT
     Route: 065

REACTIONS (6)
  - Somnolence [Recovering/Resolving]
  - Abdominal pain [Recovering/Resolving]
  - Intentional overdose [Unknown]
  - Sinus bradycardia [Recovering/Resolving]
  - Hypotension [Recovering/Resolving]
  - Suicidal ideation [Unknown]
